FAERS Safety Report 9257988 (Version 1)
Quarter: 2013Q2

REPORT INFORMATION
  Report Type: Spontaneous
  Country: US (occurrence: None)
  Receive Date: 20130424
  Receipt Date: 20130424
  Transmission Date: 20140414
  Serious: Yes (Disabling)
  Sender: FDA-Public Use
  Company Number: None

PATIENT
  Sex: Female
  Weight: 54.43 kg

DRUGS (2)
  1. XARELTO 20 MG [Suspect]
     Dates: start: 201302
  2. PRADAXA [Suspect]
     Dates: start: 201303

REACTIONS (1)
  - Blood disorder [None]
